FAERS Safety Report 19246659 (Version 1)
Quarter: 2021Q2

REPORT INFORMATION
  Report Type: Spontaneous
  Country: US (occurrence: US)
  Receive Date: 20210512
  Receipt Date: 20210512
  Transmission Date: 20210717
  Serious: Yes (Other)
  Sender: FDA-Public Use
  Company Number: US-TEVA-2021-US-1910310

PATIENT
  Age: 74 Year
  Sex: Female

DRUGS (11)
  1. AUSTEDO [Suspect]
     Active Substance: DEUTETRABENAZINE
     Indication: TARDIVE DYSKINESIA
     Dosage: 18 MILLIGRAM DAILY;
     Route: 048
     Dates: start: 202011, end: 202104
  2. MAXEPA [Concomitant]
     Active Substance: DOCONEXENT\ICOSAPENT
  3. VITAMIN D3 [Concomitant]
     Active Substance: CHOLECALCIFEROL
  4. GLUCOSAMINE?CHONDROITI 250?200 [Concomitant]
  5. MELATONIN [Concomitant]
     Active Substance: MELATONIN
  6. PROBIOTIC [Concomitant]
     Active Substance: PROBIOTICS NOS
  7. MUCUS RELIEF ER 600 MG [Concomitant]
  8. PROVENTIL [Concomitant]
     Active Substance: ALBUTEROL
  9. ALL DAY ALLERGY [Concomitant]
     Active Substance: CETIRIZINE HYDROCHLORIDE
  10. COENZYME Q10 [Concomitant]
     Active Substance: DIETARY SUPPLEMENT\UBIDECARENONE
  11. XANAX [Concomitant]
     Active Substance: ALPRAZOLAM

REACTIONS (6)
  - Cough [Recovering/Resolving]
  - Upper-airway cough syndrome [Recovering/Resolving]
  - Tremor [Recovered/Resolved]
  - Rhinorrhoea [Recovering/Resolving]
  - Dry mouth [Recovering/Resolving]
  - Choking [Recovering/Resolving]

NARRATIVE: CASE EVENT DATE: 2021
